FAERS Safety Report 4358138-3 (Version None)
Quarter: 2004Q2

REPORT INFORMATION
  Report Type: 
  Country: None (occurrence: None)
  Receive Date: 20040511
  Receipt Date: 20040427
  Transmission Date: 20050107
  Serious: Yes (Hospitalization)
  Sender: FDA-Public Use
  Company Number: JP-JNJFOC-20040305082

PATIENT
  Age: 65 Year
  Sex: Male

DRUGS (3)
  1. ITRACONAZOLE [Suspect]
     Indication: ONYCHOMYCOSIS
     Dosage: 100;400 MG, IN 1 DAY, ORAL
     Route: 048
     Dates: start: 20040213, end: 20040227
  2. ITRACONAZOLE [Suspect]
     Indication: ONYCHOMYCOSIS
     Dosage: 100;400 MG, IN 1 DAY, ORAL
     Route: 048
     Dates: start: 20040228
  3. INSULIN [Suspect]
     Indication: BLOOD GLUCOSE INCREASED

REACTIONS (4)
  - DIABETES MELLITUS INADEQUATE CONTROL [None]
  - FRACTURE [None]
  - HYPOGLYCAEMIA [None]
  - MEDICATION ERROR [None]
